FAERS Safety Report 20395062 (Version 1)
Quarter: 2022Q1

REPORT INFORMATION
  Report Type: Spontaneous
  Country: US (occurrence: US)
  Receive Date: 20220130
  Receipt Date: 20220130
  Transmission Date: 20220424
  Serious: No
  Sender: FDA-Public Use
  Company Number: US-PAIPHARMA-2021-US-010489

PATIENT
  Age: 82 Year
  Sex: Female
  Weight: 58.97 kg

DRUGS (1)
  1. NYSTATIN [Suspect]
     Active Substance: NYSTATIN
     Indication: Candida infection
     Dosage: 4 TIMES A DAY
     Route: 048
     Dates: start: 20210402, end: 20210406

REACTIONS (6)
  - Gingival pain [Unknown]
  - Gingival swelling [Unknown]
  - Breath odour [Unknown]
  - Condition aggravated [Unknown]
  - Drug ineffective [Unknown]
  - Dental caries [Unknown]

NARRATIVE: CASE EVENT DATE: 20210406
